FAERS Safety Report 17658042 (Version 7)
Quarter: 2020Q3

REPORT INFORMATION
  Report Type: Spontaneous
  Country: ZA (occurrence: ZA)
  Receive Date: 20200411
  Receipt Date: 20200707
  Transmission Date: 20201102
  Serious: Yes (Other)
  Sender: FDA-Public Use
  Company Number: ZA-AMGEN-ZAFSP2020041267

PATIENT
  Age: 53 Year
  Sex: Female
  Weight: 91.2 kg

DRUGS (1)
  1. ENBREL [Suspect]
     Active Substance: ETANERCEPT
     Indication: PRODUCT USED FOR UNKNOWN INDICATION
     Dosage: 50 MG, WEEKLY
     Route: 058
     Dates: start: 20200304, end: 20200425

REACTIONS (23)
  - Abdominal pain upper [Not Recovered/Not Resolved]
  - Arthralgia [Unknown]
  - Tension headache [Recovering/Resolving]
  - Influenza like illness [Recovering/Resolving]
  - Condition aggravated [Not Recovered/Not Resolved]
  - Upper-airway cough syndrome [Not Recovered/Not Resolved]
  - Pain in extremity [Unknown]
  - Migraine [Recovering/Resolving]
  - Nausea [Recovering/Resolving]
  - Diarrhoea [Recovering/Resolving]
  - Gingival pain [Unknown]
  - Cough [Not Recovered/Not Resolved]
  - Sneezing [Not Recovered/Not Resolved]
  - Feeling hot [Not Recovered/Not Resolved]
  - Cold sweat [Not Recovered/Not Resolved]
  - Nasal congestion [Unknown]
  - Systemic lupus erythematosus [Not Recovered/Not Resolved]
  - Sinus headache [Not Recovered/Not Resolved]
  - Wheezing [Unknown]
  - Nasal discomfort [Unknown]
  - Rheumatoid arthritis [Unknown]
  - Treatment failure [Unknown]
  - Back pain [Unknown]

NARRATIVE: CASE EVENT DATE: 2020
